FAERS Safety Report 9783013 (Version 2)
Quarter: 2014Q1

REPORT INFORMATION
  Report Type: Spontaneous
  Country: US (occurrence: US)
  Receive Date: 20131226
  Receipt Date: 20140207
  Transmission Date: 20141002
  Serious: Yes (Other)
  Sender: FDA-Public Use
  Company Number: US-ASTELLAS-2013US013099

PATIENT
  Age: 57 Year
  Sex: Female

DRUGS (6)
  1. MYRBETRIQ [Suspect]
     Indication: HYPERTONIC BLADDER
     Dosage: 50 MG, UNKNOWN/D
     Route: 048
     Dates: start: 20130529, end: 20130906
  2. MYRBETRIQ [Suspect]
     Dosage: 50 MG, UID/QD
     Route: 048
     Dates: start: 201310, end: 201311
  3. PREDNISONE [Suspect]
     Indication: FOOT FRACTURE
     Dosage: UNK
     Route: 065
  4. PREDNISONE [Suspect]
     Indication: SWELLING
  5. PREDNISONE [Suspect]
     Indication: SINUS DISORDER
  6. UNSPECIFIED PAIN MEDICATIONS [Suspect]
     Indication: PAIN
     Dosage: UNK
     Route: 065

REACTIONS (6)
  - Intentional drug misuse [Unknown]
  - Drug ineffective [Unknown]
  - Intraocular pressure increased [Not Recovered/Not Resolved]
  - Foot fracture [Recovering/Resolving]
  - Rhinorrhoea [Unknown]
  - Headache [Unknown]
